FAERS Safety Report 4844133-4 (Version None)
Quarter: 2005Q4

REPORT INFORMATION
  Report Type: 
  Country: None (occurrence: None)
  Receive Date: 20051202
  Receipt Date: 20051122
  Transmission Date: 20060501
  Serious: Yes (Hospitalization)
  Sender: FDA-Public Use
  Company Number: BR-SANOFI-SYNTHELABO-A01200508115

PATIENT
  Age: 37 Year
  Sex: Female
  Weight: 48 kg

DRUGS (2)
  1. STILNOX [Suspect]
     Indication: INSOMNIA
     Route: 048
     Dates: start: 20051028, end: 20051028
  2. DIAZEPAM [Concomitant]
     Indication: DRUG USE FOR UNKNOWN INDICATION
     Dosage: 0-3 TABLETS DAILY
     Route: 048
     Dates: end: 20051026

REACTIONS (6)
  - HYPOTENSION [None]
  - HYPOTHERMIA [None]
  - NAUSEA [None]
  - PARAESTHESIA [None]
  - SYNCOPE [None]
  - VOMITING [None]
